FAERS Safety Report 7917998-7 (Version None)
Quarter: 2011Q4

REPORT INFORMATION
  Report Type: 
  Country: None (occurrence: None)
  Receive Date: 20111116
  Receipt Date: 20111110
  Transmission Date: 20120403
  Serious: Yes (Hospitalization)
  Sender: FDA-Public Use
  Company Number: GB-JNJFOC-20111101563

PATIENT
  Age: 83 Year
  Sex: Female

DRUGS (7)
  1. BENDROFLUMETHIAZIDE [Concomitant]
     Route: 048
     Dates: start: 20060101, end: 20110112
  2. ASPIRIN [Suspect]
     Indication: PROPHYLAXIS
     Route: 048
     Dates: start: 20060101, end: 20110112
  3. AMLODIPINE [Concomitant]
     Route: 048
     Dates: start: 20060101, end: 20110112
  4. LANSOPRAZOLE [Concomitant]
     Route: 048
     Dates: start: 20090101, end: 20110112
  5. SIMVASTATIN [Concomitant]
     Indication: PRODUCT USED FOR UNKNOWN INDICATION
     Route: 048
     Dates: start: 20060101, end: 20110112
  6. IBUPROFEN [Suspect]
     Indication: RHEUMATOID ARTHRITIS
     Route: 048
     Dates: start: 20010101, end: 20110112
  7. ATENOLOL [Concomitant]
     Route: 048
     Dates: start: 20060101, end: 20110112

REACTIONS (4)
  - FAECES DISCOLOURED [None]
  - BLOOD PRESSURE DECREASED [None]
  - SYNCOPE [None]
  - ULCER [None]
